FAERS Safety Report 5938709-0 (Version None)
Quarter: 2008Q4

REPORT INFORMATION
  Report Type: 
  Country: None (occurrence: None)
  Receive Date: 20081103
  Receipt Date: 20081029
  Transmission Date: 20090506
  Serious: Yes (Other)
  Sender: FDA-Public Use
  Company Number: US-ASTRAZENECA-2007UW09584

PATIENT
  Age: 42 Year
  Sex: Female
  Weight: 97.1 kg

DRUGS (4)
  1. SEROQUEL [Suspect]
     Indication: SCHIZOPHRENIA
     Route: 048
     Dates: start: 20030101
  2. PAXIL [Concomitant]
  3. LEXAPRO [Concomitant]
     Dates: start: 20030101
  4. AMITRIPTYLINE HCL [Concomitant]

REACTIONS (10)
  - ASTHMA [None]
  - BACTERIAL DISEASE CARRIER [None]
  - BLOOD CHOLESTEROL INCREASED [None]
  - BLOOD GLUCOSE DECREASED [None]
  - DIABETES MELLITUS [None]
  - GASTROOESOPHAGEAL REFLUX DISEASE [None]
  - HYPERGLYCAEMIA [None]
  - HYPERTENSION [None]
  - INTERVERTEBRAL DISC PROTRUSION [None]
  - SARCOIDOSIS [None]
